FAERS Safety Report 4917148-5 (Version None)
Quarter: 2006Q1

REPORT INFORMATION
  Report Type: 
  Country: None (occurrence: None)
  Receive Date: 20060217
  Receipt Date: 20060207
  Transmission Date: 20060701
  Serious: Yes (Death, Hospitalization)
  Sender: FDA-Public Use
  Company Number: DL2005261

PATIENT
  Age: 34 Year
  Sex: Female

DRUGS (2)
  1. MIFEPRISTONE TABLETS, 200 MG (DANCO LABS) [Suspect]
     Indication: ABORTION INDUCED
     Dosage: 200 MG, ORAL
     Route: 048
     Dates: start: 20050609
  2. MISOPROSTOL [Suspect]
     Dosage: 800 MCG, VAGINAL
     Route: 067
     Dates: start: 20050610

REACTIONS (16)
  - ASCITES [None]
  - BACTERIAL INFECTION [None]
  - CLOSTRIDIAL INFECTION [None]
  - ENDOMETRITIS [None]
  - ENDOMETRITIS DECIDUAL [None]
  - ESCHERICHIA INFECTION [None]
  - HAEMATOCRIT INCREASED [None]
  - HAEMOGLOBIN INCREASED [None]
  - HAEMORRHAGE [None]
  - MUSCLE SPASMS [None]
  - NECROSIS [None]
  - PAIN [None]
  - PLEURAL EFFUSION [None]
  - PURULENCE [None]
  - SEPSIS [None]
  - VOMITING [None]
